FAERS Safety Report 7636714 (Version 4)
Quarter: 2014Q2

REPORT INFORMATION
  Report Type: Spontaneous
  Country: ES (occurrence: ES)
  Receive Date: 20101021
  Receipt Date: 20140521
  Transmission Date: 20141212
  Serious: Yes (Other)
  Sender: FDA-Public Use
  Company Number: ES-MYLANLABS-2010S1018953

PATIENT
  Age: 47 Year
  Sex: Male

DRUGS (4)
  1. LAMOTRIGINE [Suspect]
     Indication: PARTIAL SEIZURES
     Route: 065
  2. LAMOTRIGINE [Suspect]
     Route: 065
  3. PHENYTOIN [Suspect]
     Indication: PARTIAL SEIZURES
     Route: 065
  4. CLOBAZAM [Concomitant]
     Indication: PARTIAL SEIZURES
     Dosage: DRUG WITHDRAWN

REACTIONS (3)
  - Drug reaction with eosinophilia and systemic symptoms [Recovered/Resolved]
  - Hepatic failure [Recovered/Resolved]
  - Tubulointerstitial nephritis [Recovered/Resolved]
